FAERS Safety Report 8886177 (Version 1)
Quarter: 2012Q4

REPORT INFORMATION
  Report Type: 
  Country: ES (occurrence: ES)
  Receive Date: 20121105
  Receipt Date: 20121105
  Transmission Date: 20130627
  Serious: Yes (Other)
  Sender: FDA-Public Use
  Company Number: ES-GILEAD-2012-0064024

PATIENT
  Age: 45 Year
  Sex: Female

DRUGS (6)
  1. RANOLAZINE [Suspect]
     Indication: ANGINA PECTORIS
     Dosage: 750 mg, QD
     Route: 048
     Dates: start: 20121001, end: 20121007
  2. CLOPIDOGREL [Concomitant]
     Indication: ANGINA PECTORIS
     Dosage: 75 mg, QD
     Route: 048
     Dates: start: 20120720
  3. ATORVASTATINA [Concomitant]
     Indication: ANGINA PECTORIS
     Dosage: 40 mg, QD
     Route: 048
     Dates: start: 20120702
  4. EMCONCOR [Concomitant]
     Indication: ANGINA PECTORIS
     Dosage: 5 mg, QD
     Route: 048
     Dates: start: 20120702
  5. ADIRO [Concomitant]
     Indication: ANGINA PECTORIS
     Dosage: 100 mg, QD
     Route: 048
     Dates: start: 20120702
  6. DIAFUSOR [Concomitant]
     Indication: ANGINA PECTORIS
     Dosage: 10 mg, UNK
     Route: 003
     Dates: start: 20120911

REACTIONS (1)
  - Menorrhagia [Recovered/Resolved]
